FAERS Safety Report 5789896-9 (Version None)
Quarter: 2008Q2

REPORT INFORMATION
  Report Type: 
  Country: None (occurrence: None)
  Receive Date: 20080624
  Receipt Date: 20080506
  Transmission Date: 20081010
  Serious: Yes (Other)
  Sender: FDA-Public Use
  Company Number: E2090-00488-SPO-AT

PATIENT
  Age: 33 Year
  Sex: Female
  Weight: 50 kg

DRUGS (4)
  1. ZONEGRAN [Suspect]
     Indication: EPILEPSY
     Dosage: 300 MG, ORAL, 50-0-100, ORAL
     Route: 048
     Dates: start: 20061101, end: 20080101
  2. ZONEGRAN [Suspect]
     Indication: EPILEPSY
     Dosage: 300 MG, ORAL, 50-0-100, ORAL
     Route: 048
     Dates: start: 20080101
  3. TRILEPTAL [Suspect]
     Indication: EPILEPSY
     Dosage: 2400 MG, ORAL
     Route: 048
     Dates: start: 20060101
  4. MALIASIN (BARBEXACLONE) [Concomitant]

REACTIONS (2)
  - DRUG INTERACTION [None]
  - LEUKOPENIA [None]
